FAERS Safety Report 7360344-0 (Version None)
Quarter: 2011Q1

REPORT INFORMATION
  Report Type: 
  Country: None (occurrence: None)
  Receive Date: 20110318
  Receipt Date: 20110311
  Transmission Date: 20110831
  Serious: Yes (Other)
  Sender: FDA-Public Use
  Company Number: US-JNJFOC-20110306386

PATIENT
  Sex: Male

DRUGS (6)
  1. LIPITOR [Concomitant]
     Indication: MYOCARDIAL INFARCTION
     Route: 048
  2. PLAVIX [Concomitant]
     Indication: MYOCARDIAL INFARCTION
     Route: 048
  3. METOPROLOL TARTRATE [Concomitant]
     Indication: HYPERTENSION
     Dosage: DAILY
     Route: 048
  4. DURAGESIC-50 [Suspect]
     Indication: PAIN
     Route: 062
  5. DURAGESIC-50 [Suspect]
     Dosage: NDC: 50458-092-05
     Route: 062
  6. METOPROLOL TARTRATE [Concomitant]
     Route: 048

REACTIONS (3)
  - HYPERTENSION [None]
  - DEHYDRATION [None]
  - MUSCLE SPASMS [None]
